FAERS Safety Report 10733339 (Version 2)
Quarter: 2015Q1

REPORT INFORMATION
  Report Type: Spontaneous
  Country: US (occurrence: US)
  Receive Date: 20150123
  Receipt Date: 20150226
  Transmission Date: 20150721
  Serious: No
  Sender: FDA-Public Use
  Company Number: US-ASTRAZENECA-2015SE04401

PATIENT
  Age: 90 Year
  Sex: Male

DRUGS (1)
  1. SYMBICORT [Suspect]
     Active Substance: BUDESONIDE\FORMOTEROL FUMARATE DIHYDRATE
     Dosage: 160/4.5 MCG, 1-2 PUFFS, TWO TIMES A DAY
     Route: 055

REACTIONS (2)
  - Intentional product misuse [Unknown]
  - Condition aggravated [Unknown]
